FAERS Safety Report 10435748 (Version 1)
Quarter: 2014Q3

REPORT INFORMATION
  Report Type: Spontaneous
  Country: US (occurrence: US)
  Receive Date: 20140908
  Receipt Date: 20140908
  Transmission Date: 20150326
  Serious: Yes (Other)
  Sender: FDA-Public Use
  Company Number: US-BAYER-2014-130877

PATIENT
  Age: 55 Year
  Sex: Male

DRUGS (1)
  1. SORAFENIB (RAF KINASE INHIBITOR) [Suspect]
     Active Substance: SORAFENIB
     Indication: PAPILLARY THYROID CANCER
     Dosage: UNK
     Dates: start: 201107

REACTIONS (5)
  - Drug ineffective [None]
  - Palmar-plantar erythrodysaesthesia syndrome [None]
  - Papillary thyroid cancer [None]
  - Oral disorder [None]
  - Radiculopathy [None]

NARRATIVE: CASE EVENT DATE: 2012
